FAERS Safety Report 4456752-8 (Version None)
Quarter: 2004Q3

REPORT INFORMATION
  Report Type: 
  Country: None (occurrence: None)
  Receive Date: 20040921
  Receipt Date: 20040914
  Transmission Date: 20050211
  Serious: Yes (Death)
  Sender: FDA-Public Use
  Company Number: 2004SE05127

PATIENT
  Age: 81 Year
  Sex: Female
  Weight: 65 kg

DRUGS (8)
  1. NAROPIN [Suspect]
     Indication: PAIN
     Dosage: 225 MG ONCE IV
     Route: 042
     Dates: start: 20040616, end: 20040616
  2. FUROSEMIDE [Concomitant]
  3. ATENOLOL [Concomitant]
  4. ACETYLSALICYLIC ACID [Concomitant]
  5. DIGOXIN [Concomitant]
  6. LANZOPRAZOLE [Concomitant]
  7. DIAZEPAM [Concomitant]
  8. AMILORIDE [Concomitant]

REACTIONS (4)
  - CARDIAC FAILURE CONGESTIVE [None]
  - CIRCULATORY COLLAPSE [None]
  - CONVULSION [None]
  - POST PROCEDURAL COMPLICATION [None]
